FAERS Safety Report 19079286 (Version 5)
Quarter: 2021Q3

REPORT INFORMATION
  Report Type: Report from Study
  Country: FR (occurrence: FR)
  Receive Date: 20210331
  Receipt Date: 20210924
  Transmission Date: 20211014
  Serious: Yes (Life-Threatening, Hospitalization, Other)
  Sender: FDA-Public Use
  Company Number: FR-EXELIXIS-XL18420031398

PATIENT

DRUGS (16)
  1. LOPERAMIDE [Concomitant]
     Active Substance: LOPERAMIDE
  2. FUROSEMIDE. [Concomitant]
     Active Substance: FUROSEMIDE
  3. XL184 [Suspect]
     Active Substance: CABOZANTINIB
     Dosage: 20 MG, QD (EVERY 24 HRS)
     Route: 048
     Dates: start: 20210316, end: 20210429
  4. LACTULOSE. [Concomitant]
     Active Substance: LACTULOSE
  5. RIFAXIMIN. [Concomitant]
     Active Substance: RIFAXIMIN
  6. NEFOPAM [Concomitant]
     Active Substance: NEFOPAM
  7. POTASSIUM [Concomitant]
     Active Substance: POTASSIUM
  8. FOLIC ACID. [Concomitant]
     Active Substance: FOLIC ACID
  9. ECONAZOLE NITRATE. [Concomitant]
     Active Substance: ECONAZOLE NITRATE
  10. XL184 [Suspect]
     Active Substance: CABOZANTINIB
     Indication: HEPATOCELLULAR CARCINOMA
     Dosage: 60 MG, QD (EVERY 24 HRS)
     Route: 048
     Dates: start: 20200504, end: 20200602
  11. MAGNESIUM [Concomitant]
     Active Substance: MAGNESIUM
  12. METFORMIN [Concomitant]
     Active Substance: METFORMIN HYDROCHLORIDE
  13. XL184 [Suspect]
     Active Substance: CABOZANTINIB
     Dosage: 40 MG, QD (EVERY 24 HRS)
     Route: 048
     Dates: start: 20210205, end: 20210315
  14. SPIRONOLACTONE. [Concomitant]
     Active Substance: SPIRONOLACTONE
  15. BETAMETHASONE. [Concomitant]
     Active Substance: BETAMETHASONE
  16. LIDOCAINE. [Concomitant]
     Active Substance: LIDOCAINE

REACTIONS (4)
  - Ischaemic stroke [Recovered/Resolved with Sequelae]
  - Skin ulcer [Recovered/Resolved]
  - Hepatic failure [Not Recovered/Not Resolved]
  - Diarrhoea [Recovered/Resolved]

NARRATIVE: CASE EVENT DATE: 20200504
